FAERS Safety Report 19597992 (Version 1)
Quarter: 2021Q3

REPORT INFORMATION
  Report Type: Report from Study
  Country: US (occurrence: US)
  Receive Date: 20210723
  Receipt Date: 20210723
  Transmission Date: 20211014
  Serious: Yes (Other)
  Sender: FDA-Public Use
  Company Number: US-JNJFOC-20200516559

PATIENT
  Age: 74 Year
  Sex: Male

DRUGS (3)
  1. XARELTO [Suspect]
     Active Substance: RIVAROXABAN
     Indication: ATRIAL FIBRILLATION
     Route: 048
  2. IMBRUVICA [Suspect]
     Active Substance: IBRUTINIB
     Indication: MANTLE CELL LYMPHOMA
     Route: 048
     Dates: start: 20200104
  3. IMBRUVICA [Suspect]
     Active Substance: IBRUTINIB
     Route: 048
     Dates: start: 20200103

REACTIONS (12)
  - Epistaxis [Unknown]
  - Catheter site haemorrhage [Unknown]
  - Wound [Unknown]
  - Ear haemorrhage [Unknown]
  - Wound haemorrhage [Unknown]
  - Atrial fibrillation [Unknown]
  - Increased tendency to bruise [Unknown]
  - Dyspnoea [Not Recovered/Not Resolved]
  - Chronic sinusitis [Unknown]
  - Contusion [Unknown]
  - Ear infection [Unknown]
  - Haemorrhagic diathesis [Unknown]

NARRATIVE: CASE EVENT DATE: 2020
